FAERS Safety Report 8144505-9 (Version None)
Quarter: 2012Q1

REPORT INFORMATION
  Report Type: 
  Country: None (occurrence: None)
  Receive Date: 20120217
  Receipt Date: 20120207
  Transmission Date: 20120608
  Serious: Yes (Hospitalization)
  Sender: FDA-Public Use
  Company Number: US-JNJFOC-20120205334

PATIENT
  Sex: Female
  Weight: 35.7 kg

DRUGS (21)
  1. TACROLIMUS [Concomitant]
  2. FLUCONAZOLE [Concomitant]
  3. DOCUSATE SODIUM [Concomitant]
  4. CERTOLIZUMAB PEGOL [Concomitant]
     Dates: start: 20100514
  5. ACETAMINOPHEN [Concomitant]
  6. TRIAMCINOLONE [Concomitant]
  7. TOPICAL PREPARATIONS [Concomitant]
  8. LANSOPRAZOLE [Concomitant]
  9. AMITRIPTYLINE HCL [Concomitant]
  10. OXYCODONE HCL [Concomitant]
  11. VITAMIN D [Concomitant]
  12. CALCIUM [Concomitant]
  13. TRAMADOL HCL [Concomitant]
  14. FERROUS SULFATE TAB [Concomitant]
  15. REMICADE [Suspect]
     Indication: INFLAMMATORY BOWEL DISEASE
     Route: 042
     Dates: start: 20070802, end: 20080709
  16. MULTI-VITAMINS [Concomitant]
  17. CITALOPRAM HYDROBROMIDE [Concomitant]
  18. MAGNESIUM OXIDE [Concomitant]
  19. CYPROHEPTADINE HCL [Concomitant]
  20. ASCORBIC ACID [Concomitant]
  21. CHOLECALCIFEROL [Concomitant]

REACTIONS (1)
  - CELLULITIS [None]
